FAERS Safety Report 24860604 (Version 1)
Quarter: 2025Q1

REPORT INFORMATION
  Report Type: Spontaneous
  Country: AU (occurrence: AU)
  Receive Date: 20250120
  Receipt Date: 20250120
  Transmission Date: 20250409
  Serious: Yes (Other)
  Sender: ALKEM
  Company Number: AU-ALKEM LABORATORIES LIMITED-AU-ALKEM-2025-00221

PATIENT
  Age: 49 Year
  Sex: Male

DRUGS (4)
  1. ATORVASTATIN CALCIUM [Suspect]
     Active Substance: ATORVASTATIN CALCIUM
     Indication: Product used for unknown indication
     Route: 065
  2. RABEPRAZOLE [Suspect]
     Active Substance: RABEPRAZOLE
     Indication: Product used for unknown indication
     Route: 065
  3. CITALOPRAM [Suspect]
     Active Substance: CITALOPRAM
     Indication: Product used for unknown indication
     Route: 065
  4. DIAZEPAM [Suspect]
     Active Substance: DIAZEPAM
     Indication: Product used for unknown indication
     Route: 065

REACTIONS (12)
  - Electrocardiogram QT prolonged [Unknown]
  - Blood calcium abnormal [Unknown]
  - Blood prolactin abnormal [Unknown]
  - Vitamin D abnormal [Unknown]
  - Blood urea abnormal [Unknown]
  - Electrocardiogram ST-T change [Unknown]
  - Left ventricular hypertrophy [Unknown]
  - Orthostatic hypotension [Unknown]
  - QRS axis abnormal [Unknown]
  - Blood glucose increased [Unknown]
  - Diarrhoea [Unknown]
  - Liver function test abnormal [Unknown]
